FAERS Safety Report 8920697 (Version 2)
Quarter: 2013Q1

REPORT INFORMATION
  Report Type: Spontaneous
  Country: US (occurrence: US)
  Receive Date: 20121122
  Receipt Date: 20130122
  Transmission Date: 20140127
  Serious: Yes (Other)
  Sender: FDA-Public Use
  Company Number: PHHY2012US105099

PATIENT
  Sex: Female

DRUGS (1)
  1. GENTEAL [Suspect]
     Indication: DRY EYE
     Dosage: UNK
     Route: 047
     Dates: end: 20121115

REACTIONS (1)
  - Dry eye [Unknown]
